FAERS Safety Report 8942340 (Version 1)
Quarter: 2012Q4

REPORT INFORMATION
  Report Type: Spontaneous
  Country: US (occurrence: None)
  Receive Date: 20121123
  Receipt Date: 20121123
  Transmission Date: 20130627
  Serious: Yes (Death, Other)
  Sender: FDA-Public Use
  Company Number: TPA2012A01319

PATIENT
  Age: 74 Year
  Sex: Male
  Weight: 108.86 kg

DRUGS (5)
  1. ACTOS (PIOGLITAZONE HYDROCHLORIDE) (TABLETS) [Suspect]
     Indication: TYPE 2 DIABETES MELLITUS
     Dates: start: 200105, end: 201101
  2. METFORMIN (METFORMIN) [Concomitant]
  3. GLYSET (GLIMEPIRIDE) [Concomitant]
  4. LISPRO (HUMALOG) (INSULIN LISPRO) [Concomitant]
  5. LEVEMIR (INSULIN DETEMIR) [Concomitant]

REACTIONS (2)
  - Metastatic carcinoma of the bladder [None]
  - Urinary tract infection [None]
